FAERS Safety Report 17420050 (Version 2)
Quarter: 2020Q1

REPORT INFORMATION
  Report Type: Spontaneous
  Country: US (occurrence: US)
  Receive Date: 20200214
  Receipt Date: 20200220
  Transmission Date: 20200409
  Serious: No
  Sender: FDA-Public Use
  Company Number: US-PFIZER INC-2020064375

PATIENT
  Age: 42 Year
  Sex: Male
  Weight: 132.9 kg

DRUGS (1)
  1. VIAGRA [Suspect]
     Active Substance: SILDENAFIL CITRATE
     Indication: MICTURITION DISORDER
     Dosage: 100 MG, 1X/DAY
     Route: 048

REACTIONS (5)
  - Drug effective for unapproved indication [Unknown]
  - Product use in unapproved indication [Unknown]
  - Pre-existing condition improved [Unknown]
  - Off label use [Unknown]
  - Therapeutic response unexpected [Unknown]
